FAERS Safety Report 14903993 (Version 1)
Quarter: 2018Q2

REPORT INFORMATION
  Report Type: Spontaneous
  Country: US (occurrence: US)
  Receive Date: 20180516
  Receipt Date: 20180516
  Transmission Date: 20180711
  Serious: No
  Sender: FDA-Public Use
  Company Number: US-COLLEGIUM PHARMACEUTICAL, INC.-2018CGM00039

PATIENT
  Sex: Female

DRUGS (2)
  1. UNSPECIFIED CHEMOTHERAPY [Suspect]
     Active Substance: UNSPECIFIED INGREDIENT
     Indication: NEOPLASM MALIGNANT
  2. XTAMPZA ER [Suspect]
     Active Substance: OXYCODONE

REACTIONS (1)
  - Nausea [Unknown]
